FAERS Safety Report 22035526 (Version 4)
Quarter: 2023Q2

REPORT INFORMATION
  Report Type: Report from Study
  Country: CN (occurrence: None)
  Receive Date: 20230224
  Receipt Date: 20230511
  Transmission Date: 20230722
  Serious: Yes (Death, Hospitalization)
  Sender: FDA-Public Use
  Company Number: 2022A201444

PATIENT
  Age: 21433 Day
  Sex: Male

DRUGS (43)
  1. DURVALUMAB [Suspect]
     Active Substance: DURVALUMAB
     Indication: Transitional cell carcinoma
     Route: 042
     Dates: start: 20210619, end: 20210619
  2. DURVALUMAB [Suspect]
     Active Substance: DURVALUMAB
     Indication: Transitional cell carcinoma
     Route: 042
     Dates: start: 20210713, end: 20210713
  3. DURVALUMAB [Suspect]
     Active Substance: DURVALUMAB
     Indication: Transitional cell carcinoma
     Route: 042
     Dates: start: 20210805, end: 20210805
  4. DURVALUMAB [Suspect]
     Active Substance: DURVALUMAB
     Indication: Transitional cell carcinoma
     Route: 042
     Dates: start: 20210902, end: 20210902
  5. DURVALUMAB [Suspect]
     Active Substance: DURVALUMAB
     Indication: Transitional cell carcinoma
     Route: 042
     Dates: start: 20210930, end: 20210930
  6. DURVALUMAB [Suspect]
     Active Substance: DURVALUMAB
     Indication: Transitional cell carcinoma
     Route: 042
     Dates: start: 20211112, end: 20211112
  7. DURVALUMAB [Suspect]
     Active Substance: DURVALUMAB
     Indication: Transitional cell carcinoma
     Route: 042
     Dates: start: 20211208, end: 20211208
  8. DURVALUMAB [Suspect]
     Active Substance: DURVALUMAB
     Indication: Transitional cell carcinoma
     Route: 042
     Dates: start: 20220105, end: 20220105
  9. DURVALUMAB [Suspect]
     Active Substance: DURVALUMAB
     Indication: Transitional cell carcinoma
     Route: 042
     Dates: start: 20220208, end: 20220208
  10. DURVALUMAB [Suspect]
     Active Substance: DURVALUMAB
     Indication: Transitional cell carcinoma
     Route: 042
     Dates: start: 20220309, end: 20220309
  11. DURVALUMAB [Suspect]
     Active Substance: DURVALUMAB
     Indication: Transitional cell carcinoma
     Route: 042
     Dates: start: 20220510, end: 20220510
  12. DURVALUMAB [Suspect]
     Active Substance: DURVALUMAB
     Indication: Transitional cell carcinoma
     Route: 042
     Dates: start: 20210326, end: 20210326
  13. DURVALUMAB [Suspect]
     Active Substance: DURVALUMAB
     Indication: Transitional cell carcinoma
     Route: 042
     Dates: start: 20210416, end: 20210416
  14. DURVALUMAB [Suspect]
     Active Substance: DURVALUMAB
     Indication: Transitional cell carcinoma
     Route: 042
     Dates: start: 20210507, end: 20210507
  15. DURVALUMAB [Suspect]
     Active Substance: DURVALUMAB
     Indication: Transitional cell carcinoma
     Route: 042
     Dates: start: 20210528, end: 20210528
  16. TREMELIMUMAB [Suspect]
     Active Substance: TREMELIMUMAB
     Indication: Transitional cell carcinoma
     Route: 042
     Dates: start: 20210326, end: 20210326
  17. TREMELIMUMAB [Suspect]
     Active Substance: TREMELIMUMAB
     Indication: Transitional cell carcinoma
     Route: 042
     Dates: start: 20210416, end: 20210416
  18. TREMELIMUMAB [Suspect]
     Active Substance: TREMELIMUMAB
     Indication: Transitional cell carcinoma
     Route: 042
     Dates: start: 20210507, end: 20210507
  19. TREMELIMUMAB [Suspect]
     Active Substance: TREMELIMUMAB
     Indication: Transitional cell carcinoma
     Route: 042
     Dates: start: 20210528, end: 20210528
  20. CISPLATIN [Suspect]
     Active Substance: CISPLATIN
     Indication: Transitional cell carcinoma
     Route: 042
     Dates: start: 20210326, end: 20210326
  21. CISPLATIN [Suspect]
     Active Substance: CISPLATIN
     Indication: Transitional cell carcinoma
     Route: 042
     Dates: start: 20210416, end: 20210416
  22. CISPLATIN [Suspect]
     Active Substance: CISPLATIN
     Indication: Transitional cell carcinoma
     Route: 042
     Dates: start: 20210507, end: 20210507
  23. CISPLATIN [Suspect]
     Active Substance: CISPLATIN
     Indication: Transitional cell carcinoma
     Route: 042
     Dates: start: 20210528, end: 20210528
  24. CISPLATIN [Suspect]
     Active Substance: CISPLATIN
     Indication: Transitional cell carcinoma
     Route: 042
     Dates: start: 20210619, end: 20210619
  25. CISPLATIN [Suspect]
     Active Substance: CISPLATIN
     Indication: Transitional cell carcinoma
     Route: 042
     Dates: start: 20210713, end: 20210713
  26. GEMCITABINE [Suspect]
     Active Substance: GEMCITABINE
     Indication: Transitional cell carcinoma
     Dosage: 1000 MG/M2 ON DAYS 1 AND 8 OF EVERY 3 WEEK CYCLE FOR 6 CYCLES
     Route: 042
     Dates: start: 20210326, end: 20210326
  27. GEMCITABINE [Suspect]
     Active Substance: GEMCITABINE
     Indication: Transitional cell carcinoma
     Dosage: 1000 MG/M2 ON DAYS 1 AND 8 OF EVERY 3 WEEK CYCLE FOR 6 CYCLES
     Route: 042
     Dates: start: 20210402, end: 20210402
  28. GEMCITABINE [Suspect]
     Active Substance: GEMCITABINE
     Indication: Transitional cell carcinoma
     Dosage: 1000 MG/M2 ON DAYS 1 AND 8 OF EVERY 3 WEEK CYCLE FOR 6 CYCLES
     Route: 042
     Dates: start: 20210416, end: 20210416
  29. GEMCITABINE [Suspect]
     Active Substance: GEMCITABINE
     Indication: Transitional cell carcinoma
     Dosage: 1000 MG/M2 ON DAYS 1 AND 8 OF EVERY 3 WEEK CYCLE FOR 6 CYCLES
     Route: 042
     Dates: start: 20210423, end: 20210423
  30. GEMCITABINE [Suspect]
     Active Substance: GEMCITABINE
     Indication: Transitional cell carcinoma
     Dosage: 1000 MG/M2 ON DAYS 1 AND 8 OF EVERY 3 WEEK CYCLE FOR 6 CYCLES
     Route: 042
     Dates: start: 20210507, end: 20210507
  31. GEMCITABINE [Suspect]
     Active Substance: GEMCITABINE
     Indication: Transitional cell carcinoma
     Dosage: 1000 MG/M2 ON DAYS 1 AND 8 OF EVERY 3 WEEK CYCLE FOR 6 CYCLES
     Route: 042
     Dates: start: 20210514, end: 20210514
  32. GEMCITABINE [Suspect]
     Active Substance: GEMCITABINE
     Indication: Transitional cell carcinoma
     Dosage: 1000 MG/M2 ON DAYS 1 AND 8 OF EVERY 3 WEEK CYCLE FOR 6 CYCLES
     Route: 042
     Dates: start: 20210528, end: 20210528
  33. GEMCITABINE [Suspect]
     Active Substance: GEMCITABINE
     Indication: Transitional cell carcinoma
     Dosage: 1000 MG/M2 ON DAYS 1 AND 8 OF EVERY 3 WEEK CYCLE FOR 6 CYCLES
     Route: 042
     Dates: start: 20210604, end: 20210604
  34. GEMCITABINE [Suspect]
     Active Substance: GEMCITABINE
     Indication: Transitional cell carcinoma
     Dosage: 1000 MG/M2 ON DAYS 1 AND 8 OF EVERY 3 WEEK CYCLE FOR 6 CYCLES
     Route: 042
     Dates: start: 20210619, end: 20210619
  35. GEMCITABINE [Suspect]
     Active Substance: GEMCITABINE
     Indication: Transitional cell carcinoma
     Dosage: 1000 MG/M2 ON DAYS 1 AND 8 OF EVERY 3 WEEK CYCLE FOR 6 CYCLES
     Route: 042
     Dates: start: 20210629, end: 20210629
  36. GEMCITABINE [Suspect]
     Active Substance: GEMCITABINE
     Indication: Transitional cell carcinoma
     Dosage: 1000 MG/M2 ON DAYS 1 AND 8 OF EVERY 3 WEEK CYCLE FOR 6 CYCLES
     Route: 042
     Dates: start: 20210713, end: 20210713
  37. GEMCITABINE [Suspect]
     Active Substance: GEMCITABINE
     Indication: Transitional cell carcinoma
     Dosage: 1000 MG/M2 ON DAYS 1 AND 8 OF EVERY 3 WEEK CYCLE FOR 6 CYCLES
     Route: 042
     Dates: start: 20210720
  38. RECOMBINANT HUMAN GRANULOCYTE COLONY-STIMULATING FACTOR INJECTION [Concomitant]
     Indication: Neutrophil count decreased
     Dosage: 100 UG/INHAL
     Route: 042
     Dates: start: 20210422
  39. RECOMBINANT HUMAN GRANULOCYTE COLONY-STIMULATING FACTOR INJECTION [Concomitant]
     Indication: Leukopenia
     Dosage: 100 UG/INHAL
     Route: 042
     Dates: start: 20210422
  40. METFORMIN HYDROCHLORIDE ENTERIC-COATED TABLETS [Concomitant]
     Indication: Diabetes mellitus
     Route: 048
     Dates: start: 202006
  41. GLIMEPIRIDE [Concomitant]
     Active Substance: GLIMEPIRIDE
     Indication: Diabetes mellitus
     Route: 048
     Dates: start: 202006
  42. DIETARY SUPPLEMENT\HERBALS\MILK THISTLE [Concomitant]
     Active Substance: MILK THISTLE
     Indication: Alanine aminotransferase
     Route: 048
     Dates: start: 20220208, end: 20220308
  43. DIETARY SUPPLEMENT\HERBALS\MILK THISTLE [Concomitant]
     Active Substance: MILK THISTLE
     Indication: Liver injury
     Route: 048
     Dates: start: 20220208, end: 20220308

REACTIONS (2)
  - Immune-mediated cholangitis [Fatal]
  - Drug-induced liver injury [Not Recovered/Not Resolved]

NARRATIVE: CASE EVENT DATE: 20220526
